FAERS Safety Report 5956358-5 (Version None)
Quarter: 2008Q4

REPORT INFORMATION
  Report Type: 
  Country: None (occurrence: None)
  Receive Date: 20081118
  Receipt Date: 20081105
  Transmission Date: 20090506
  Serious: Yes (Hospitalization)
  Sender: FDA-Public Use
  Company Number: US-KINGPHARMUSA00001-K200801308

PATIENT
  Age: 76 Year
  Sex: Female

DRUGS (2)
  1. THROMBIN NOS [Suspect]
     Indication: OPERATIVE HAEMORRHAGE
     Dosage: 1000 U, ONCE
     Dates: start: 20080401, end: 20080401
  2. THROMBIN NOS [Suspect]
     Dosage: UNK
     Dates: start: 20080409, end: 20080409

REACTIONS (8)
  - ANAEMIA [None]
  - COAGULOPATHY [None]
  - DISSEMINATED INTRAVASCULAR COAGULATION [None]
  - FACTOR V INHIBITION [None]
  - HAEMATOMA [None]
  - HAEMORRHAGE [None]
  - POST PROCEDURAL HAEMATOMA [None]
  - SHOCK HAEMORRHAGIC [None]
